FAERS Safety Report 6613464-X (Version None)
Quarter: 2010Q1

REPORT INFORMATION
  Report Type: 
  Country: None (occurrence: None)
  Receive Date: 20100304
  Receipt Date: 20100225
  Transmission Date: 20100710
  Serious: Yes (Death)
  Sender: FDA-Public Use
  Company Number: SE-ROXANE LABORATORIES, INC.-2010-DE-01323GD

PATIENT
  Age: 27 Year
  Sex: Female

DRUGS (1)
  1. MORPHINE [Suspect]

REACTIONS (3)
  - DRUG ABUSE [None]
  - DRUG TOXICITY [None]
  - OVERDOSE [None]
